FAERS Safety Report 8287176-3 (Version None)
Quarter: 2012Q2

REPORT INFORMATION
  Report Type: 
  Country: None (occurrence: None)
  Receive Date: 20120416
  Receipt Date: 20120416
  Transmission Date: 20120825
  Serious: Yes (Death)
  Sender: FDA-Public Use
  Company Number: US-TEVA-190157USA

PATIENT
  Age: 21 Year
  Sex: Female

DRUGS (2)
  1. NORDETTE 28 DAY TABLET [Suspect]
     Indication: CONTRACEPTION
  2. DEPO-PROVERA [Suspect]
     Indication: CONTRACEPTION
     Route: 030

REACTIONS (1)
  - CEREBRAL VENOUS THROMBOSIS [None]
